FAERS Safety Report 8485237-7 (Version None)
Quarter: 2012Q3

REPORT INFORMATION
  Report Type: 
  Country: None (occurrence: None)
  Receive Date: 20120703
  Receipt Date: 20120626
  Transmission Date: 20120928
  Serious: No
  Sender: FDA-Public Use
  Company Number: US-BAYER-2012-064854

PATIENT
  Age: 62 Year
  Sex: Female
  Weight: 65.76 kg

DRUGS (6)
  1. ASCORBIC ACID [Concomitant]
  2. CALCIUM CITRATE [Concomitant]
  3. ALEVE (CAPLET) [Suspect]
     Indication: HEADACHE
     Dosage: 2 DF, PRN
     Route: 048
     Dates: start: 20120101
  4. ONE-A-DAY ESSENTIAL [Concomitant]
  5. VITAMIN B COMPLEX CAP [Concomitant]
  6. VITAMIN D [Concomitant]

REACTIONS (1)
  - HEADACHE [None]
